FAERS Safety Report 5521288-X (Version None)
Quarter: 2007Q4

REPORT INFORMATION
  Report Type: 
  Country: None (occurrence: None)
  Receive Date: 20071119
  Receipt Date: 20071023
  Transmission Date: 20080405
  Serious: No
  Sender: FDA-Public Use
  Company Number: US-BOEHRINGER INGELHEIM PHARMACEUTICALS, INC.-2006-BP-06104BP

PATIENT
  Sex: Male

DRUGS (2)
  1. MIRAPEX [Suspect]
     Indication: RESTLESS LEGS SYNDROME
     Route: 048
  2. MULTI-VITAMIN [Concomitant]

REACTIONS (4)
  - BLOOD THYROID STIMULATING HORMONE DECREASED [None]
  - HYPERTHYROIDISM [None]
  - HYPOTHYROIDISM [None]
  - INSOMNIA [None]
